FAERS Safety Report 5002259-9 (Version None)
Quarter: 2006Q2

REPORT INFORMATION
  Report Type: 
  Country: None (occurrence: None)
  Receive Date: 20060511
  Receipt Date: 20060511
  Transmission Date: 20061013
  Serious: No
  Sender: FDA-Public Use
  Company Number: None

PATIENT
  Age: 67 Year
  Sex: Female
  Weight: 55 kg

DRUGS (3)
  1. PROPRANOLOL [Suspect]
     Indication: TREMOR
     Dosage: 10 MG Q 12 HR FEEDING TUBE
     Route: 050
     Dates: start: 20060413
  2. PROPRANOLOL [Suspect]
     Indication: TREMOR
     Dosage: 10 MG Q 12 HR FEEDING TUBE
     Route: 050
     Dates: start: 20060415
  3. PROPRANOLOL [Suspect]
     Indication: TREMOR
     Dosage: 10 MG Q 12 HR FEEDING TUBE
     Route: 050
     Dates: start: 20060416

REACTIONS (3)
  - LETHARGY [None]
  - SEDATION [None]
  - UNRESPONSIVE TO VERBAL STIMULI [None]
